FAERS Safety Report 8314307-9 (Version None)
Quarter: 2012Q2

REPORT INFORMATION
  Report Type: 
  Country: None (occurrence: None)
  Receive Date: 20120426
  Receipt Date: 20120425
  Transmission Date: 20120825
  Serious: Yes (Hospitalization)
  Sender: FDA-Public Use
  Company Number: US-ROCHE-1018096

PATIENT
  Sex: Male
  Weight: 21.792 kg

DRUGS (6)
  1. RISPERDAL [Concomitant]
     Indication: PRODUCT USED FOR UNKNOWN INDICATION
  2. VERAMYST [Concomitant]
     Indication: PRODUCT USED FOR UNKNOWN INDICATION
  3. CORTISOL [Concomitant]
     Indication: PRODUCT USED FOR UNKNOWN INDICATION
  4. NUTROPIN AQ [Suspect]
     Indication: PRADER-WILLI SYNDROME
     Route: 058
  5. ALBUTEROL [Concomitant]
     Indication: PRODUCT USED FOR UNKNOWN INDICATION
  6. SYMBICORT [Concomitant]
     Indication: PRODUCT USED FOR UNKNOWN INDICATION

REACTIONS (1)
  - PNEUMONIA [None]
